FAERS Safety Report 8319052-1 (Version None)
Quarter: 2012Q2

REPORT INFORMATION
  Report Type: 
  Country: None (occurrence: None)
  Receive Date: 20120427
  Receipt Date: 20120420
  Transmission Date: 20120825
  Serious: Yes (Death, Hospitalization)
  Sender: FDA-Public Use
  Company Number: US-ACTELION-A-NJ2011-55171

PATIENT

DRUGS (2)
  1. TRACLEER [Suspect]
     Indication: PULMONARY ARTERIAL HYPERTENSION
     Dosage: UNK
     Route: 048
     Dates: start: 20020708, end: 20120224
  2. COUMADIN [Concomitant]

REACTIONS (3)
  - CONDITION AGGRAVATED [None]
  - PULMONARY ARTERIAL HYPERTENSION [None]
  - ASCITES [None]
